FAERS Safety Report 5479132-5 (Version None)
Quarter: 2007Q4

REPORT INFORMATION
  Report Type: 
  Country: None (occurrence: None)
  Receive Date: 20071006
  Receipt Date: 20070926
  Transmission Date: 20080405
  Serious: Yes (Other)
  Sender: FDA-Public Use
  Company Number: BR-PFIZER INC-2007081921

PATIENT
  Sex: Male

DRUGS (5)
  1. LIPITOR [Suspect]
     Indication: BLOOD CHOLESTEROL INCREASED
     Route: 048
  2. METFORMIN HCL [Concomitant]
     Route: 048
  3. VALSARTAN [Concomitant]
     Route: 048
  4. RIVOTRIL [Concomitant]
     Route: 048
  5. AAS [Concomitant]
     Route: 048

REACTIONS (6)
  - ASTHENIA [None]
  - BALANCE DISORDER [None]
  - DIZZINESS [None]
  - IRRITABILITY [None]
  - MUSCLE FATIGUE [None]
  - PAIN [None]
